FAERS Safety Report 23911027 (Version 5)
Quarter: 2024Q3

REPORT INFORMATION
  Report Type: Report from Study
  Country: IT (occurrence: IT)
  Receive Date: 20240528
  Receipt Date: 20240924
  Transmission Date: 20241016
  Serious: Yes (Death, Life-Threatening, Hospitalization)
  Sender: JOHNSON AND JOHNSON
  Company Number: IT-JNJFOC-20240550106

PATIENT
  Age: 76 Year
  Sex: Female

DRUGS (5)
  1. TECLISTAMAB [Suspect]
     Active Substance: TECLISTAMAB
     Indication: Plasma cell myeloma
     Dosage: LAST ADMINISTRATION WAS 02-SEP-2022
     Route: 065
     Dates: start: 20220707
  2. TECLISTAMAB [Suspect]
     Active Substance: TECLISTAMAB
     Dosage: STEP-UP DOSE 2
     Route: 065
     Dates: start: 20220711
  3. TECLISTAMAB [Suspect]
     Active Substance: TECLISTAMAB
     Dosage: FIRST MAINTENANCE DOSE
     Route: 065
     Dates: start: 20220714
  4. COMIRNATY [Concomitant]
     Indication: COVID-19 immunisation
  5. EVUSHELD [Concomitant]
     Active Substance: CILGAVIMAB\TIXAGEVIMAB
     Indication: COVID-19 immunisation

REACTIONS (2)
  - Toxic encephalopathy [Fatal]
  - Pneumonia [Fatal]

NARRATIVE: CASE EVENT DATE: 20220724
